FAERS Safety Report 23664315 (Version 1)
Quarter: 2024Q1

REPORT INFORMATION
  Report Type: Spontaneous
  Country: US (occurrence: US)
  Receive Date: 20240322
  Receipt Date: 20240322
  Transmission Date: 20240410
  Serious: Yes (Other)
  Sender: FDA-Public Use
  Company Number: US-RK PHARMA, INC-20240300012

PATIENT

DRUGS (8)
  1. PALIPERIDONE [Suspect]
     Active Substance: PALIPERIDONE
     Indication: Bipolar disorder
     Dosage: UNK, UNKNOWN
     Route: 048
  2. PALIPERIDONE [Suspect]
     Active Substance: PALIPERIDONE
     Dosage: 234 MILLIGRAM, UNKNOWN
     Route: 065
  3. RISPERIDONE [Suspect]
     Active Substance: RISPERIDONE
     Indication: Bipolar disorder
     Dosage: 4 MILLIGRAM, QD
     Route: 065
  4. RISPERIDONE [Suspect]
     Active Substance: RISPERIDONE
     Dosage: 156 MILLIGRAM
     Route: 048
  5. VALPROATE [Suspect]
     Active Substance: VALPROIC ACID
     Indication: Bipolar disorder
     Dosage: UNK, UNKNOWN
     Route: 065
  6. VALPROATE [Suspect]
     Active Substance: VALPROIC ACID
     Dosage: 91 MILLIGRAM PER MILLILITRE
  7. VALPROATE [Suspect]
     Active Substance: VALPROIC ACID
     Dosage: 78 UNK
  8. BENZTROPINE [Concomitant]
     Active Substance: BENZTROPINE
     Indication: Bipolar disorder
     Dosage: 1 MILLIGRAM, QD
     Route: 065

REACTIONS (1)
  - Hyperammonaemic encephalopathy [Recovered/Resolved]
